FAERS Safety Report 5541762-X (Version None)
Quarter: 2007Q4

REPORT INFORMATION
  Report Type: 
  Country: None (occurrence: None)
  Receive Date: 20071210
  Receipt Date: 20071203
  Transmission Date: 20080405
  Serious: Yes (Other)
  Sender: FDA-Public Use
  Company Number: A0696983A

PATIENT
  Age: 72 Year
  Sex: Female

DRUGS (2)
  1. COREG [Suspect]
     Indication: HYPERTENSION
     Dosage: 6.25MG TWICE PER DAY
     Route: 048
     Dates: start: 20030101
  2. LIPITOR [Concomitant]

REACTIONS (3)
  - HYPOGLYCAEMIA [None]
  - ORGASM ABNORMAL [None]
  - WITHDRAWAL SYNDROME [None]
